FAERS Safety Report 8792631 (Version 1)
Quarter: 2012Q4

REPORT INFORMATION
  Report Type: 
  Country: BR (occurrence: BR)
  Receive Date: 20120918
  Receipt Date: 20120918
  Transmission Date: 20130627
  Serious: Yes (Hospitalization, Other)
  Sender: FDA-Public Use
  Company Number: BR-GLAXOSMITHKLINE-A0752214A

PATIENT
  Age: 64 Year
  Sex: Female
  Weight: 91 kg

DRUGS (6)
  1. SERETIDE [Suspect]
     Indication: ASTHMA
     Dosage: 1PUFF Twice per day
     Route: 055
     Dates: start: 2002
  2. PREDNISONE [Concomitant]
     Dosage: 1TAB Per day
     Route: 065
     Dates: start: 2002
  3. ADALAT [Concomitant]
     Dates: start: 2003
  4. HYDROCHLOROTHIAZIDE [Concomitant]
     Dates: start: 2003
  5. TRIMEDAL [Concomitant]
     Indication: PAIN
     Dosage: 1TAB Per day
     Route: 065
     Dates: start: 2011
  6. PENTOXIFYLLIN [Concomitant]
     Dosage: 1TAB Twice per day
     Dates: start: 2011

REACTIONS (11)
  - Pneumonia [Recovered/Resolved]
  - Vasculitis [Not Recovered/Not Resolved]
  - Cough [Recovered/Resolved]
  - Pyrexia [Recovered/Resolved]
  - Back pain [Recovered/Resolved]
  - Haemoptysis [Recovered/Resolved]
  - Blister [Unknown]
  - Wound [Unknown]
  - Impaired healing [Unknown]
  - Tendon disorder [Unknown]
  - Bedridden [Unknown]
